FAERS Safety Report 9554179 (Version 2)
Quarter: 2013Q4

REPORT INFORMATION
  Report Type: Spontaneous
  Country: US (occurrence: US)
  Receive Date: 20130925
  Receipt Date: 20131001
  Transmission Date: 20140711
  Serious: Yes (Other)
  Sender: FDA-Public Use
  Company Number: US-ASTRAZENECA-2013SE70710

PATIENT
  Sex: Female

DRUGS (1)
  1. SYMBICORT [Suspect]
     Dosage: 160/4.5 MCG, UNKNOWN 60 INHALATION
     Route: 055

REACTIONS (3)
  - Asthma [Unknown]
  - Bronchospasm [Unknown]
  - Circumstance or information capable of leading to medication error [Unknown]
